FAERS Safety Report 8355380-1 (Version None)
Quarter: 2012Q2

REPORT INFORMATION
  Report Type: 
  Country: None (occurrence: None)
  Receive Date: 20120511
  Receipt Date: 20110401
  Transmission Date: 20120825
  Serious: No
  Sender: FDA-Public Use
  Company Number: US-TEVA-2011001631

PATIENT
  Sex: Female
  Weight: 65.83 kg

DRUGS (2)
  1. NUVIGIL [Suspect]
     Indication: FATIGUE
     Route: 048
     Dates: start: 20110109, end: 20110101
  2. CRESTOR [Concomitant]
     Dates: start: 20090901

REACTIONS (1)
  - INTENTIONAL DRUG MISUSE [None]
